FAERS Safety Report 15580630 (Version 2)
Quarter: 2018Q4

REPORT INFORMATION
  Report Type: Report from Study
  Country: US (occurrence: US)
  Receive Date: 20181102
  Receipt Date: 20181211
  Transmission Date: 20190205
  Serious: Yes (Other)
  Sender: FDA-Public Use
  Company Number: US-TEVA-2018-US-969936

PATIENT
  Sex: Male

DRUGS (12)
  1. TAMSULOSIN [Suspect]
     Active Substance: TAMSULOSIN
     Dates: start: 20180709
  2. AZILECT [Suspect]
     Active Substance: RASAGILINE MESYLATE
     Dates: start: 201809
  3. CRANBERRY. [Concomitant]
     Active Substance: CRANBERRY
     Indication: SUPPLEMENTATION THERAPY
  4. GOCOVRI [Suspect]
     Active Substance: AMANTADINE
     Dosage: 274 MILLIGRAM DAILY; AT BEDTIME
     Route: 048
     Dates: start: 20180302
  5. RYTARY [Suspect]
     Active Substance: CARBIDOPA\LEVODOPA
     Dates: end: 2017
  6. RYTARY [Suspect]
     Active Substance: CARBIDOPA\LEVODOPA
     Dosage: THREE HOURS BETWEEN DOSES
     Route: 065
     Dates: start: 2017
  7. AMOXICILLIN/K CLAVULANATE [Concomitant]
  8. CARBIDOPA/LEVODOPA [Concomitant]
     Active Substance: CARBIDOPA\LEVODOPA
     Dosage: 25-100 MG
     Dates: start: 20180220
  9. AZILECT [Suspect]
     Active Substance: RASAGILINE MESYLATE
     Dates: end: 201809
  10. LOSARTAN POTASSIUM. [Concomitant]
     Active Substance: LOSARTAN POTASSIUM
  11. KRILL OIL [Concomitant]
     Active Substance: DIETARY SUPPLEMENT
  12. GOCOVRI [Suspect]
     Active Substance: AMANTADINE
     Indication: DYSKINESIA
     Dosage: 137 MILLIGRAM DAILY;
     Dates: start: 20180216, end: 20180301

REACTIONS (4)
  - Compulsions [Not Recovered/Not Resolved]
  - Dry mouth [Unknown]
  - Dysphagia [Unknown]
  - Choking [Unknown]
